FAERS Safety Report 21768397 (Version 2)
Quarter: 2023Q1

REPORT INFORMATION
  Report Type: Spontaneous
  Country: SI (occurrence: None)
  Receive Date: 20221222
  Receipt Date: 20230126
  Transmission Date: 20230418
  Serious: Yes (Death, Life-Threatening, Hospitalization, Other)
  Sender: FDA-Public Use
  Company Number: 2022A412829

PATIENT
  Sex: Female

DRUGS (1)
  1. FASENRA [Suspect]
     Active Substance: BENRALIZUMAB
     Indication: Eosinophilia
     Route: 058
     Dates: start: 202211

REACTIONS (3)
  - Sepsis [Fatal]
  - Chronic obstructive pulmonary disease [Unknown]
  - Off label use [Fatal]
